FAERS Safety Report 7131702-4 (Version None)
Quarter: 2010Q4

REPORT INFORMATION
  Report Type: 
  Country: None (occurrence: None)
  Receive Date: 20101201
  Receipt Date: 20101119
  Transmission Date: 20110411
  Serious: Yes (Other)
  Sender: FDA-Public Use
  Company Number: US-AMGEN-USASP2010003740

PATIENT

DRUGS (5)
  1. PROCRIT [Suspect]
     Indication: MYELODYSPLASTIC SYNDROME
     Dosage: 40000 UNIT, QWK
     Route: 058
     Dates: start: 20091112, end: 20100319
  2. PROCRIT [Suspect]
     Dosage: 60000 UNIT, QWK
     Route: 058
     Dates: start: 20100319, end: 20100419
  3. PROCRIT [Suspect]
     Dosage: 40000 UNIT, QWK
     Route: 058
     Dates: start: 20100419, end: 20100510
  4. PROCRIT [Suspect]
     Dosage: 60000 UNIT, QWK
     Route: 058
     Dates: start: 20100712, end: 20101020
  5. RED BLOOD CELLS [Concomitant]
     Dosage: 2 UNIT, Q2WK

REACTIONS (4)
  - APLASIA PURE RED CELL [None]
  - COLITIS [None]
  - PNEUMONIA [None]
  - THERAPEUTIC RESPONSE DECREASED [None]
